FAERS Safety Report 4978958-1 (Version None)
Quarter: 2006Q2

REPORT INFORMATION
  Report Type: 
  Country: None (occurrence: None)
  Receive Date: 20060417
  Receipt Date: 20060404
  Transmission Date: 20061013
  Serious: Yes (Hospitalization)
  Sender: FDA-Public Use
  Company Number: 2006047335

PATIENT

DRUGS (2)
  1. ZYVOX [Suspect]
     Indication: SPONDYLITIS
     Dates: end: 20060301
  2. FURTHER DRUGS NOT SPECIFIED (ALL OTHER THERAPEUTIC PRODUCTS) [Concomitant]

REACTIONS (3)
  - GENERAL PHYSICAL HEALTH DETERIORATION [None]
  - HALLUCINATION [None]
  - PSYCHOTIC DISORDER [None]
